FAERS Safety Report 6010939-1 (Version None)
Quarter: 2008Q4

REPORT INFORMATION
  Report Type: 
  Country: None (occurrence: None)
  Receive Date: 20081218
  Receipt Date: 20081212
  Transmission Date: 20090506
  Serious: Yes (Hospitalization)
  Sender: FDA-Public Use
  Company Number: A0743365A

PATIENT
  Age: 64 Year
  Sex: Male

DRUGS (3)
  1. AVANDIA [Suspect]
     Dosage: 4MG PER DAY
     Route: 048
     Dates: start: 20030416, end: 20071204
  2. PREDNISONE TAB [Concomitant]
     Dates: start: 20040421
  3. ADVAIR DISKUS 500/50 [Concomitant]

REACTIONS (1)
  - MYOCARDIAL INFARCTION [None]
